FAERS Safety Report 12091350 (Version 2)
Quarter: 2016Q1

REPORT INFORMATION
  Report Type: Not Available
  Country: PT (occurrence: PT)
  Receive Date: 20160218
  Receipt Date: 20160303
  Transmission Date: 20160526
  Serious: Yes (Disabling)
  Sender: FDA-Public Use
  Company Number: US-AKORN-24855

PATIENT
  Age: 73 Year
  Sex: Female

DRUGS (1)
  1. ZIOPTAN [Suspect]
     Active Substance: TAFLUPROST

REACTIONS (7)
  - Eyelash hyperpigmentation [None]
  - Enophthalmos [None]
  - Overdose [None]
  - Eye swelling [None]
  - Disorder of globe [None]
  - Blepharal pigmentation [None]
  - Facial pain [None]

NARRATIVE: CASE EVENT DATE: 20151001
